FAERS Safety Report 18665903 (Version 6)
Quarter: 2021Q1

REPORT INFORMATION
  Report Type: Report from Study
  Country: US (occurrence: US)
  Receive Date: 20201226
  Receipt Date: 20210305
  Transmission Date: 20210419
  Serious: Yes (Life-Threatening)
  Sender: FDA-Public Use
  Company Number: NVSC2020US336021

PATIENT
  Sex: Male
  Weight: 250 kg

DRUGS (2)
  1. ENTRESTO [Suspect]
     Active Substance: SACUBITRIL\VALSARTAN
     Indication: PRODUCT USED FOR UNKNOWN INDICATION
     Dosage: 100 MG, BID (49/51MG)
     Route: 048
     Dates: start: 202011
  2. ENTRESTO [Suspect]
     Active Substance: SACUBITRIL\VALSARTAN
     Dosage: 200 MG, BID (97/103 MG)
     Route: 048

REACTIONS (11)
  - Cardiac disorder [Unknown]
  - Near death experience [Unknown]
  - Asthma [Unknown]
  - Memory impairment [Recovering/Resolving]
  - Dyspnoea [Unknown]
  - Cough [Unknown]
  - Polyuria [Not Recovered/Not Resolved]
  - Weight increased [Unknown]
  - Weight decreased [Unknown]
  - Joint swelling [Unknown]
  - Blood glucose abnormal [Unknown]
